FAERS Safety Report 6380903-1 (Version None)
Quarter: 2009Q3

REPORT INFORMATION
  Report Type: 
  Country: None (occurrence: None)
  Receive Date: 20090929
  Receipt Date: 20090922
  Transmission Date: 20100115
  Serious: Yes (Other)
  Sender: FDA-Public Use
  Company Number: B0594534A

PATIENT
  Age: 28 Year
  Sex: Male

DRUGS (1)
  1. FLONASE [Suspect]
     Indication: DRUG USE FOR UNKNOWN INDICATION
     Dosage: 6DROP TWICE PER DAY
     Route: 045
     Dates: start: 20080101

REACTIONS (2)
  - DRUG ABUSE [None]
  - OFF LABEL USE [None]
